FAERS Safety Report 4694434-8 (Version None)
Quarter: 2005Q2

REPORT INFORMATION
  Report Type: 
  Country: None (occurrence: None)
  Receive Date: 20050620
  Receipt Date: 20050613
  Transmission Date: 20051028
  Serious: Yes (Hospitalization)
  Sender: FDA-Public Use
  Company Number: US-JNJFOC-20050202749

PATIENT
  Sex: Female

DRUGS (5)
  1. DURAGESIC-100 [Suspect]
     Dosage: (ONE 25 UG/HR PATCH PLUS ONE 50 UG/HR PATCH)
     Route: 062
     Dates: start: 20040601
  2. UNIPHYL [Concomitant]
     Indication: ASTHMA
     Route: 049
     Dates: start: 20030901
  3. SINGULAIR [Concomitant]
     Indication: ASTHMA
     Route: 049
     Dates: start: 20030901
  4. ADVAIR [Concomitant]
     Route: 049
     Dates: start: 20040201
  5. ADVAIR [Concomitant]
     Indication: ASTHMA
     Dosage: 250/50 1 IN 1 DAY
     Route: 049
     Dates: start: 20040201

REACTIONS (1)
  - ASTHMA [None]
